FAERS Safety Report 5430089-2 (Version None)
Quarter: 2007Q3

REPORT INFORMATION
  Report Type: 
  Country: None (occurrence: None)
  Receive Date: 20070829
  Receipt Date: 20070827
  Transmission Date: 20080115
  Serious: Yes (Hospitalization)
  Sender: FDA-Public Use
  Company Number: DE-ABBOTT-02P-062-0204172-00

PATIENT
  Age: 83 Year
  Sex: Male

DRUGS (7)
  1. VERAPAMIL EXTENDED-RELEASE [Suspect]
     Indication: SICK SINUS SYNDROME
  2. COLCHICINE TABLETS [Interacting]
     Indication: GOUT
     Route: 048
  3. AMBROXOL [Concomitant]
     Indication: SILICOSIS
  4. DICLOFENAC SODIUM [Concomitant]
     Indication: PAIN
  5. FUROSEMIDE [Concomitant]
     Indication: SICK SINUS SYNDROME
  6. ASPIRIN [Concomitant]
     Indication: SICK SINUS SYNDROME
  7. THEOPHYLLINE [Concomitant]
     Indication: SICK SINUS SYNDROME

REACTIONS (3)
  - DRUG INTERACTION [None]
  - GUILLAIN-BARRE SYNDROME [None]
  - PARESIS [None]
